FAERS Safety Report 8003457-2 (Version None)
Quarter: 2011Q4

REPORT INFORMATION
  Report Type: 
  Country: None (occurrence: None)
  Receive Date: 20111222
  Receipt Date: 20111222
  Transmission Date: 20120403
  Serious: Yes (Other)
  Sender: FDA-Public Use
  Company Number: None

PATIENT
  Sex: Female
  Weight: 81.646 kg

DRUGS (2)
  1. EPSOM SALT [Concomitant]
     Indication: INFLAMMATION
     Dosage: APPROX 2 CUPS
     Route: 061
     Dates: start: 20111220, end: 20111220
  2. EPSOM SALT [Suspect]
     Indication: INCISION SITE COMPLICATION
     Dosage: APPROX 2 CUPS
     Route: 061
     Dates: start: 20111218, end: 20111218

REACTIONS (4)
  - PRURITUS [None]
  - PAIN [None]
  - URTICARIA [None]
  - CONTUSION [None]
